FAERS Safety Report 9429575 (Version 1)
Quarter: 2013Q3

REPORT INFORMATION
  Report Type: Report from Study
  Country: US (occurrence: US)
  Receive Date: 20130730
  Receipt Date: 20130730
  Transmission Date: 20140515
  Serious: No
  Sender: FDA-Public Use
  Company Number: US-ABBOTT-13P-163-1079465-00

PATIENT
  Sex: Female
  Weight: 55.39 kg

DRUGS (1)
  1. NIASPAN (COATED) [Suspect]
     Indication: FAMILIAL RISK FACTOR
     Dosage: 500MG X 2 TABS
     Dates: start: 201208

REACTIONS (1)
  - Unevaluable event [Recovered/Resolved]
